FAERS Safety Report 13257330 (Version 2)
Quarter: 2017Q2

REPORT INFORMATION
  Report Type: Spontaneous
  Country: US (occurrence: US)
  Receive Date: 20170221
  Receipt Date: 20170411
  Transmission Date: 20170830
  Serious: No
  Sender: FDA-Public Use
  Company Number: US-TEVA-741031ACC

PATIENT
  Age: 62 Year
  Sex: Female

DRUGS (13)
  1. COQ10 [Concomitant]
     Active Substance: UBIDECARENONE
     Dates: start: 20080509
  2. VITAMIN C [Concomitant]
     Active Substance: ASCORBIC ACID
     Dates: start: 20080509
  3. CALCIUM [Concomitant]
     Active Substance: CALCIUM
  4. COPAXONE [Suspect]
     Active Substance: GLATIRAMER ACETATE
     Indication: MULTIPLE SCLEROSIS
     Route: 058
     Dates: start: 20150715
  5. PROGESTERONE. [Concomitant]
     Active Substance: PROGESTERONE
     Dates: start: 20080509
  6. ZOCOR [Concomitant]
     Active Substance: SIMVASTATIN
     Dates: start: 20040930
  7. VITAMIN D3 [Concomitant]
     Active Substance: CHOLECALCIFEROL
     Dates: start: 20080509
  8. DHEA [Concomitant]
     Active Substance: PRASTERONE
     Dates: start: 20080509
  9. GNP FISH OIL [Concomitant]
     Dates: start: 20080509
  10. VIVELLE-DOT DIS [Concomitant]
     Dates: start: 20080509
  11. TYLENOL/CODEINE NO. 3 [Concomitant]
     Dates: start: 20161114
  12. MAGNESIUM [Concomitant]
     Active Substance: MAGNESIUM
     Dates: start: 20080509
  13. LUNESTA [Concomitant]
     Active Substance: ESZOPICLONE
     Dates: start: 20080509

REACTIONS (4)
  - Arthralgia [Not Recovered/Not Resolved]
  - Arthropathy [Not Recovered/Not Resolved]
  - Arthritis [Not Recovered/Not Resolved]
  - Injection site reaction [Unknown]

NARRATIVE: CASE EVENT DATE: 201507
